FAERS Safety Report 9905360 (Version 1)
Quarter: 2014Q1

REPORT INFORMATION
  Report Type: Spontaneous
  Country: US (occurrence: US)
  Receive Date: 20140218
  Receipt Date: 20140218
  Transmission Date: 20141002
  Serious: Yes (Other)
  Sender: FDA-Public Use
  Company Number: US-PFIZER INC-2014042329

PATIENT
  Age: 39 Year
  Sex: Female
  Weight: 70.3 kg

DRUGS (2)
  1. CHANTIX [Suspect]
     Indication: SMOKING CESSATION THERAPY
     Dosage: UNK
     Route: 048
     Dates: start: 201312
  2. CHANTIX [Suspect]
     Dosage: 1 MG, 2X/DAY
     Route: 048
     Dates: end: 20140203

REACTIONS (13)
  - Road traffic accident [Unknown]
  - Cerebral haemorrhage [Unknown]
  - Head injury [Unknown]
  - Amnesia [Unknown]
  - Headache [Recovering/Resolving]
  - Dizziness [Recovering/Resolving]
  - Confusional state [Recovering/Resolving]
  - Migraine [Recovered/Resolved]
  - Hallucination [Recovered/Resolved]
  - Abnormal dreams [Recovering/Resolving]
  - Nightmare [Recovering/Resolving]
  - Fear [Unknown]
  - Laboratory test abnormal [Recovered/Resolved]
